FAERS Safety Report 25184016 (Version 2)
Quarter: 2025Q2

REPORT INFORMATION
  Report Type: Spontaneous
  Country: US (occurrence: US)
  Receive Date: 20250410
  Receipt Date: 20250423
  Transmission Date: 20250716
  Serious: Yes (Life-Threatening)
  Sender: PFIZER
  Company Number: US-PFIZER INC-PV202500041649

PATIENT
  Age: 50 Year
  Sex: Male

DRUGS (1)
  1. FENTANYL CITRATE [Suspect]
     Active Substance: FENTANYL CITRATE
     Dosage: 18 BAGS DAILY

REACTIONS (5)
  - Overdose [Unknown]
  - Fall [Unknown]
  - Drug use disorder [Unknown]
  - Withdrawal syndrome [Unknown]
  - Agitation [Unknown]
